FAERS Safety Report 26107191 (Version 1)
Quarter: 2025Q4

REPORT INFORMATION
  Report Type: Spontaneous
  Country: EU (occurrence: EU)
  Receive Date: 20251201
  Receipt Date: 20251201
  Transmission Date: 20260117
  Serious: Yes (Disabling, Other)
  Sender: TAKEDA
  Company Number: None

PATIENT
  Age: 44 Year
  Sex: Female
  Weight: 67 kg

DRUGS (1)
  1. ANAGRELIDE HYDROCHLORIDE [Suspect]
     Active Substance: ANAGRELIDE HYDROCHLORIDE
     Indication: Essential thrombocythaemia
     Dosage: 1.5 MILLIGRAM, QD
     Dates: start: 2008

REACTIONS (2)
  - Hypertension [Not Recovered/Not Resolved]
  - Normal tension glaucoma [Not Recovered/Not Resolved]

NARRATIVE: CASE EVENT DATE: 20250701
